FAERS Safety Report 23738748 (Version 1)
Quarter: 2024Q2

REPORT INFORMATION
  Report Type: Spontaneous
  Country: FR (occurrence: FR)
  Receive Date: 20240413
  Receipt Date: 20240413
  Transmission Date: 20240717
  Serious: Yes (Hospitalization, Other)
  Sender: FDA-Public Use
  Company Number: FR-AFSSAPS-AN2024000457

PATIENT
  Age: 2 Year
  Sex: Female
  Weight: 12.6 kg

DRUGS (16)
  1. ACETAMINOPHEN [Suspect]
     Active Substance: ACETAMINOPHEN
     Indication: Pain
     Dosage: 190 MILLIGRAM, ONCE A DAY
     Route: 042
     Dates: start: 20240220, end: 20240229
  2. FUROSEMIDE [Suspect]
     Active Substance: FUROSEMIDE
     Indication: Polyuria
     Dosage: 25 MILLIGRAM, ONCE A DAY
     Route: 042
     Dates: start: 20240220, end: 20240227
  3. MORPHINE [Suspect]
     Active Substance: MORPHINE
     Indication: Pain
     Dosage: 30 MILLIGRAM, ONCE A DAY
     Route: 042
     Dates: start: 20240222, end: 20240305
  4. NALBUPHINE [Suspect]
     Active Substance: NALBUPHINE
     Indication: Pain
     Dosage: 3 MILLIGRAM, ONCE A DAY
     Route: 042
     Dates: start: 20240223, end: 20240304
  5. NALBUPHINE [Suspect]
     Active Substance: NALBUPHINE
     Dosage: 2.5 MILLIGRAM, ONCE A DAY
     Route: 042
     Dates: start: 20240220, end: 20240220
  6. ALFACALCIDOL [Suspect]
     Active Substance: ALFACALCIDOL
     Indication: Vitamin supplementation
     Dosage: 0.2 MICROGRAM, ONCE A DAY
     Route: 048
     Dates: start: 20240227, end: 20240228
  7. CEFOTAXIME [Suspect]
     Active Substance: CEFOTAXIME SODIUM
     Indication: Pyelonephritis
     Dosage: 1260 MILLIGRAM, ONCE A DAY
     Route: 042
     Dates: start: 20240222, end: 20240302
  8. FASTURTEC [Suspect]
     Active Substance: RASBURICASE
     Indication: Prophylaxis
     Dosage: 2.5 MILLIGRAM, ONCE A DAY
     Route: 042
     Dates: start: 20240222, end: 20240225
  9. CHOLECALCIFEROL [Suspect]
     Active Substance: CHOLECALCIFEROL
     Indication: Vitamin supplementation
     Dosage: 30000 INTERNATIONAL UNIT, ONCE A DAY
     Route: 048
     Dates: start: 20240226, end: 20240228
  10. ALBUMIN HUMAN [Suspect]
     Active Substance: ALBUMIN HUMAN
     Indication: Hypogammaglobulinaemia
     Dosage: 13 GRAM, 1 TOTAL
     Route: 042
     Dates: start: 20240226, end: 20240226
  11. DEXAMETHASONE [Suspect]
     Active Substance: DEXAMETHASONE
     Indication: Acute lymphocytic leukaemia
     Dosage: 3.2 MILLIGRAM, ONCE A DAY
     Route: 042
     Dates: start: 20240223, end: 20240229
  12. METHOTREXATE [Concomitant]
     Active Substance: METHOTREXATE
     Indication: Product used for unknown indication
     Dosage: 10 MILLIGRAM, CYCLICAL
     Route: 037
     Dates: start: 20240223, end: 20240223
  13. VINCRISTINE [Concomitant]
     Active Substance: VINCRISTINE
     Indication: Product used for unknown indication
     Dosage: 0.8 MILLIGRAM, CYCLICAL
     Route: 042
     Dates: start: 20240223
  14. SODIUM CHLORIDE [Concomitant]
     Active Substance: SODIUM CHLORIDE
     Indication: Product used for unknown indication
     Dosage: VARIABLE
     Route: 042
     Dates: start: 20240220, end: 20240229
  15. VITAMIN K [Concomitant]
     Active Substance: PHYTONADIONE
     Indication: Product used for unknown indication
     Dosage: 10 MILLIGRAM, ONCE A DAY
     Route: 042
     Dates: start: 20240226, end: 20240228
  16. DEXTROSE [Concomitant]
     Active Substance: DEXTROSE\DEXTROSE MONOHYDRATE
     Indication: Product used for unknown indication
     Dosage: 1 DOSAGE FORM, CYCLICAL
     Route: 042
     Dates: start: 20240220

REACTIONS (1)
  - Pancreatitis acute [Recovered/Resolved]

NARRATIVE: CASE EVENT DATE: 20240229
